FAERS Safety Report 7002514-7 (Version None)
Quarter: 2010Q3

REPORT INFORMATION
  Report Type: 
  Country: None (occurrence: None)
  Receive Date: 20100920
  Receipt Date: 20100217
  Transmission Date: 20110219
  Serious: Yes (Hospitalization)
  Sender: FDA-Public Use
  Company Number: US-ASTRAZENECA-2008UW24336

PATIENT
  Age: 44 Year
  Sex: Female
  Weight: 118.4 kg

DRUGS (8)
  1. SEROQUEL [Suspect]
     Indication: DEPRESSION
     Route: 048
     Dates: start: 20040129, end: 20060203
  2. SEROQUEL [Suspect]
     Indication: BIPOLAR DISORDER
     Route: 048
     Dates: start: 20040129, end: 20060203
  3. SEROQUEL [Suspect]
     Dosage: 200 MG, 300 MG
     Route: 048
     Dates: start: 20040101, end: 20060901
  4. SEROQUEL [Suspect]
     Dosage: 200 MG, 300 MG
     Route: 048
     Dates: start: 20040101, end: 20060901
  5. FLUOXETINE [Concomitant]
     Dates: start: 20070101
  6. TRAZODONE HCL [Concomitant]
     Dates: start: 20070101
  7. ABILIFY [Concomitant]
     Route: 048
     Dates: start: 20060203
  8. WELLBUTRIN [Concomitant]
     Dates: start: 20060203

REACTIONS (4)
  - DIABETES MELLITUS [None]
  - DIABETES MELLITUS INADEQUATE CONTROL [None]
  - MENTAL DISORDER [None]
  - PNEUMONIA [None]
